FAERS Safety Report 20159670 (Version 1)
Quarter: 2021Q4

REPORT INFORMATION
  Report Type: Spontaneous
  Country: HR (occurrence: None)
  Receive Date: 20211208
  Receipt Date: 20211208
  Transmission Date: 20220303
  Serious: Yes (Other)
  Sender: FDA-Public Use
  Company Number: HR-ROCHE-2973713

PATIENT
  Age: 22 Year
  Sex: Female

DRUGS (6)
  1. RIVOTRIL [Suspect]
     Active Substance: CLONAZEPAM
     Indication: Suicide attempt
     Route: 048
  2. MIRTAZAPINE [Suspect]
     Active Substance: MIRTAZAPINE
     Indication: Suicide attempt
     Route: 048
  3. WELLBUTRIN [Suspect]
     Active Substance: BUPROPION HYDROCHLORIDE
     Indication: Suicide attempt
     Route: 048
  4. REGLAN [Suspect]
     Active Substance: METOCLOPRAMIDE HYDROCHLORIDE
     Indication: Suicide attempt
     Route: 048
  5. ACETAMINOPHEN [Suspect]
     Active Substance: ACETAMINOPHEN
     Indication: Suicide attempt
     Route: 048
  6. LAMOTRIGINE [Suspect]
     Active Substance: LAMOTRIGINE
     Indication: Suicide attempt
     Route: 048

REACTIONS (2)
  - Loss of consciousness [Unknown]
  - Suicide attempt [Unknown]
